FAERS Safety Report 5241880-X (Version None)
Quarter: 2007Q1

REPORT INFORMATION
  Report Type: 
  Country: None (occurrence: None)
  Receive Date: 20070220
  Receipt Date: 20070213
  Transmission Date: 20070707
  Serious: Yes (Other)
  Sender: FDA-Public Use
  Company Number: GB-PFIZER INC-2007012239

PATIENT
  Age: 75 Year
  Weight: 90 kg

DRUGS (2)
  1. AMLODIPINE [Suspect]
     Indication: ANGINA PECTORIS
     Route: 048
     Dates: start: 20060925, end: 20061031
  2. AMLODIPINE [Suspect]
     Indication: HYPERTENSION
     Route: 048
     Dates: start: 20061101, end: 20070108

REACTIONS (2)
  - MOBILITY DECREASED [None]
  - URTICARIA GENERALISED [None]
